FAERS Safety Report 4743614-1 (Version None)
Quarter: 2005Q3

REPORT INFORMATION
  Report Type: 
  Country: None (occurrence: None)
  Receive Date: 20050810
  Receipt Date: 20050810
  Transmission Date: 20060218
  Serious: Yes (Other)
  Sender: FDA-Public Use
  Company Number: None

PATIENT
  Sex: Female

DRUGS (1)
  1. HYTRIN [Suspect]
     Indication: HYPERTENSION
     Dosage: 2 MG  BID  PO
     Route: 048

REACTIONS (5)
  - DIZZINESS [None]
  - DRUG INTOLERANCE [None]
  - FEELING JITTERY [None]
  - NAUSEA [None]
  - THERAPEUTIC RESPONSE UNEXPECTED WITH DRUG SUBSTITUTION [None]
